FAERS Safety Report 4856976-1 (Version None)
Quarter: 2005Q4

REPORT INFORMATION
  Report Type: 
  Country: None (occurrence: None)
  Receive Date: 20051219
  Receipt Date: 20041206
  Transmission Date: 20060501
  Serious: No
  Sender: FDA-Public Use
  Company Number: US-GLAXOSMITHKLINE-A0536121A

PATIENT
  Age: 69 Year
  Sex: Female

DRUGS (3)
  1. NICODERM CQ [Suspect]
  2. EQUATE NTS 14MG [Suspect]
  3. MAGNESIUM-ZINC [Concomitant]

REACTIONS (2)
  - NICOTINE DEPENDENCE [None]
  - RASH GENERALISED [None]
